FAERS Safety Report 24895989 (Version 1)
Quarter: 2025Q1

REPORT INFORMATION
  Report Type: Spontaneous
  Country: US (occurrence: US)
  Receive Date: 20250128
  Receipt Date: 20250128
  Transmission Date: 20250408
  Serious: No
  Sender: AMGEN
  Company Number: US-AMGEN-USASP2025012349

PATIENT

DRUGS (2)
  1. PREDNISONE [Suspect]
     Active Substance: PREDNISONE
     Indication: Squamous cell carcinoma of head and neck
     Route: 065
  2. CETUXIMAB [Concomitant]
     Active Substance: CETUXIMAB
     Indication: Squamous cell carcinoma of head and neck
     Route: 040

REACTIONS (26)
  - Pyrexia [Unknown]
  - Chills [Unknown]
  - Fatigue [Unknown]
  - Infusion related reaction [Unknown]
  - Nausea [Unknown]
  - Aspartate aminotransferase increased [Unknown]
  - Alanine aminotransferase increased [Unknown]
  - Hypophosphataemia [Unknown]
  - Diarrhoea [Unknown]
  - Asthenia [Unknown]
  - Hypotension [Unknown]
  - Lymphopenia [Unknown]
  - Gamma-glutamyltransferase increased [Unknown]
  - Decreased appetite [Unknown]
  - Blood alkaline phosphatase increased [Unknown]
  - Dermatitis acneiform [Unknown]
  - Dry skin [Unknown]
  - Headache [Unknown]
  - Pruritus [Unknown]
  - Stomatitis [Unknown]
  - Vomiting [Unknown]
  - Skin fissures [Unknown]
  - Rash [Unknown]
  - Rash maculo-papular [Unknown]
  - Hypomagnesaemia [Unknown]
  - Paronychia [Unknown]
